FAERS Safety Report 4373331-1 (Version None)
Quarter: 2004Q2

REPORT INFORMATION
  Report Type: 
  Country: None (occurrence: None)
  Receive Date: 20040603
  Receipt Date: 20040524
  Transmission Date: 20050107
  Serious: Yes (Other)
  Sender: FDA-Public Use
  Company Number: US-SHR-04-024038

PATIENT
  Age: 58 Year
  Sex: Female
  Weight: 52.2 kg

DRUGS (7)
  1. BETASERON [Suspect]
     Indication: MULTIPLE SCLEROSIS
     Dosage: 8 MIU, EVERY 2D, SUBCUTANEOUS
     Route: 058
     Dates: start: 19960801
  2. FOSAMAX [Concomitant]
  3. PROVIGIL [Concomitant]
  4. PRAVACHOL [Concomitant]
  5. MULTIVITAMINS (RETINOL, PANTHENOL) [Concomitant]
  6. VITAMIN E [Concomitant]
  7. VITAMIN B COMPLEX CAP [Concomitant]

REACTIONS (4)
  - ARTHRALGIA [None]
  - EXOSTOSIS [None]
  - PIGMENTED NAEVUS [None]
  - TENDONITIS [None]
